FAERS Safety Report 19415307 (Version 1)
Quarter: 2021Q2

REPORT INFORMATION
  Report Type: Spontaneous
  Country: US (occurrence: US)
  Receive Date: 20210614
  Receipt Date: 20210614
  Transmission Date: 20210717
  Serious: No
  Sender: FDA-Public Use
  Company Number: US-BAXTER HEALTHCARE-2112701

PATIENT

DRUGS (4)
  1. MAGNESIUM SULFATE IN DEXTROSE [Suspect]
     Active Substance: MAGNESIUM SULFATE
  2. MAGNESIUM SULFATE IN WATER [Concomitant]
     Active Substance: MAGNESIUM SULFATE HEPTAHYDRATE
  3. MAGNESIUM SULFATE. [Suspect]
     Active Substance: MAGNESIUM SULFATE
  4. MAGNESIUM SULFATE IN WATER [Concomitant]
     Active Substance: MAGNESIUM SULFATE HEPTAHYDRATE

REACTIONS (1)
  - No adverse event [None]
